FAERS Safety Report 24745359 (Version 1)
Quarter: 2024Q4

REPORT INFORMATION
  Report Type: Report from Study
  Country: US (occurrence: US)
  Receive Date: 20241217
  Receipt Date: 20241217
  Transmission Date: 20250114
  Serious: Yes (Hospitalization)
  Sender: ABBVIE
  Company Number: US-ABBVIE-6043974

PATIENT
  Age: 83 Year
  Sex: Male

DRUGS (1)
  1. IMBRUVICA [Suspect]
     Active Substance: IBRUTINIB
     Indication: Diffuse large B-cell lymphoma
     Dosage: DISCONTINUED IN 2024
     Route: 048
     Dates: start: 202410

REACTIONS (1)
  - Blood urine present [Unknown]

NARRATIVE: CASE EVENT DATE: 20240101
